FAERS Safety Report 22144003 (Version 2)
Quarter: 2023Q2

REPORT INFORMATION
  Report Type: Spontaneous
  Country: US (occurrence: US)
  Receive Date: 20230327
  Receipt Date: 20230404
  Transmission Date: 20230722
  Serious: No
  Sender: FDA-Public Use
  Company Number: US-BRISTOL-MYERS SQUIBB COMPANY-2023-040094

PATIENT

DRUGS (1)
  1. ORENCIA [Suspect]
     Active Substance: ABATACEPT
     Indication: Product used for unknown indication
     Dosage: SINGLE DOSE VIALS OF ORENCIA

REACTIONS (4)
  - Circumstance or information capable of leading to medication error [Unknown]
  - Product contamination physical [Unknown]
  - Product deposit [Unknown]
  - Product physical consistency issue [Unknown]
